FAERS Safety Report 10390073 (Version 5)
Quarter: 2016Q2

REPORT INFORMATION
  Report Type: Spontaneous
  Country: US (occurrence: US)
  Receive Date: 20140818
  Receipt Date: 20160429
  Transmission Date: 20160815
  Serious: Yes (Hospitalization, Other)
  Sender: FDA-Public Use
  Company Number: US-BAYER-2014-121499

PATIENT
  Age: 30 Year
  Sex: Female
  Weight: 73 kg

DRUGS (7)
  1. CLINDAMYCIN [Concomitant]
     Active Substance: CLINDAMYCIN\CLINDAMYCIN PHOSPHATE
  2. ROCEPHIN [Concomitant]
     Active Substance: CEFTRIAXONE SODIUM
  3. PRENATAL PLUS IRON [Concomitant]
     Active Substance: .ALPHA.-TOCOPHEROL ACETATE, DL-\.BETA.-CAROTENE\ASCORBIC ACID\CALCIUM CARBONATE\CHOLECALCIFEROL\CUPRIC OXIDE\CYANOCOBALAMIN\FERROUS FUMARATE\FOLIC ACID\NIACINAMIDE\PYRIDOXINE HYDROCHLORIDE\RIBOFLAVIN\THIAMINE MONONITRATE\VITAMIN A ACETATE\ZINC OXIDE
  4. ZOFRAN [Concomitant]
     Active Substance: ONDANSETRON HYDROCHLORIDE
  5. MIRENA [Suspect]
     Active Substance: LEVONORGESTREL
     Indication: CONTRACEPTION
     Dosage: 20 MCG/24HR, CONT
     Route: 015
     Dates: start: 20090609, end: 20130816
  6. VANCOMYCIN [Concomitant]
     Active Substance: VANCOMYCIN
  7. LEVAQUIN [Concomitant]
     Active Substance: LEVOFLOXACIN

REACTIONS (13)
  - Uterine perforation [None]
  - Pregnancy with contraceptive device [None]
  - Drug ineffective [None]
  - Abdominal pain lower [None]
  - Chronic villitis of unknown etiology [None]
  - Intrauterine infection [None]
  - Injury [None]
  - Abortion spontaneous incomplete [None]
  - Device difficult to use [None]
  - Vaginal discharge [None]
  - Haemorrhage in pregnancy [None]
  - Pain [None]
  - Placental disorder [None]

NARRATIVE: CASE EVENT DATE: 201302
